FAERS Safety Report 8210527-2 (Version None)
Quarter: 2012Q1

REPORT INFORMATION
  Report Type: 
  Country: None (occurrence: None)
  Receive Date: 20120314
  Receipt Date: 20111110
  Transmission Date: 20120608
  Serious: No
  Sender: FDA-Public Use
  Company Number: US-ASTRAZENECA-2011SE64434

PATIENT
  Age: 58 Year
  Sex: Female

DRUGS (1)
  1. TOPROL-XL [Suspect]
     Route: 048

REACTIONS (7)
  - CARDIAC DISORDER [None]
  - CHEST DISCOMFORT [None]
  - FEELING ABNORMAL [None]
  - DRUG DOSE OMISSION [None]
  - DYSPNOEA [None]
  - ACTIVITIES OF DAILY LIVING IMPAIRED [None]
  - PALPITATIONS [None]
